FAERS Safety Report 23911496 (Version 2)
Quarter: 2025Q1

REPORT INFORMATION
  Report Type: Spontaneous
  Country: US (occurrence: US)
  Receive Date: 20240528
  Receipt Date: 20250312
  Transmission Date: 20250409
  Serious: No
  Sender: SANOFI AVENTIS
  Company Number: US-SA-SAC20240522000101

PATIENT
  Age: 26 Year
  Sex: Female

DRUGS (3)
  1. DUPIXENT [Suspect]
     Active Substance: DUPILUMAB
     Indication: Dermatitis atopic
     Route: 058
     Dates: start: 2022, end: 2022
  2. DUPIXENT [Suspect]
     Active Substance: DUPILUMAB
     Dosage: 300 MG, QOW
     Route: 058
     Dates: start: 2022, end: 202401
  3. DUPIXENT [Suspect]
     Active Substance: DUPILUMAB
     Dosage: 300 MG, QOW
     Route: 058
     Dates: start: 202403

REACTIONS (9)
  - Rash pruritic [Unknown]
  - Myalgia [Recovering/Resolving]
  - Arthralgia [Recovering/Resolving]
  - Rash [Recovering/Resolving]
  - Influenza [Recovered/Resolved]
  - Pyrexia [Recovered/Resolved]
  - Rhinorrhoea [Recovered/Resolved]
  - Dyspnoea [Recovered/Resolved]
  - Respiratory syncytial virus infection [Unknown]

NARRATIVE: CASE EVENT DATE: 20240101
